FAERS Safety Report 4832101-8 (Version None)
Quarter: 2005Q4

REPORT INFORMATION
  Report Type: 
  Country: None (occurrence: None)
  Receive Date: 20051116
  Receipt Date: 20051104
  Transmission Date: 20060501
  Serious: Yes (Death, Hospitalization)
  Sender: FDA-Public Use
  Company Number: DE-YAMANOUCHI-YEHQ20051204

PATIENT
  Age: 82 Year
  Sex: Female
  Weight: 55 kg

DRUGS (6)
  1. VESIKUR [Suspect]
     Indication: HYPERTONIC BLADDER
     Dosage: 5 MG PO
     Route: 048
     Dates: start: 20050314
  2. NITREPRESS [Concomitant]
  3. BLOPRESS [Concomitant]
  4. ERYFER [Concomitant]
  5. FUROSEMIDE [Concomitant]
  6. ALLOPURINOL [Concomitant]

REACTIONS (3)
  - PH BODY FLUID ABNORMAL [None]
  - TRANSITIONAL CELL CARCINOMA [None]
  - WHITE BLOOD CELL COUNT INCREASED [None]
